FAERS Safety Report 4689745-6 (Version None)
Quarter: 2005Q2

REPORT INFORMATION
  Report Type: 
  Country: None (occurrence: None)
  Receive Date: 20050614
  Receipt Date: 20050331
  Transmission Date: 20051028
  Serious: Yes (Other)
  Sender: FDA-Public Use
  Company Number: DE-AMGEN-UK124406

PATIENT
  Sex: Male
  Weight: 86 kg

DRUGS (6)
  1. ARANESP [Suspect]
     Indication: RENAL FAILURE CHRONIC
     Route: 042
  2. CALCITRIOL [Concomitant]
     Route: 048
  3. CALCIUM ACETATE [Concomitant]
     Route: 048
  4. XANEF [Concomitant]
     Route: 048
  5. MOXONIDINE [Concomitant]
     Route: 048
  6. NEBILET [Concomitant]
     Route: 048

REACTIONS (1)
  - ANAEMIA [None]
